FAERS Safety Report 22294897 (Version 1)
Quarter: 2023Q2

REPORT INFORMATION
  Report Type: Spontaneous
  Country: US (occurrence: None)
  Receive Date: 20230505
  Receipt Date: 20230505
  Transmission Date: 20230722
  Serious: Yes (Other)
  Sender: FDA-Public Use
  Company Number: None

PATIENT
  Age: 48 Year
  Sex: Female
  Weight: 70.8 kg

DRUGS (2)
  1. GAMMAGARD [Suspect]
     Active Substance: HUMAN IMMUNOGLOBULIN G
     Indication: Myasthenia gravis crisis
     Dosage: FREQUENCY : DAILY;?
     Route: 042
     Dates: start: 20230426, end: 20230427
  2. GAMMAGARD [Suspect]
     Active Substance: HUMAN IMMUNOGLOBULIN G
     Indication: Myasthenia gravis crisis
     Dosage: FREQUENCY : DAILY;?
     Route: 042
     Dates: start: 20230426, end: 20230427

REACTIONS (3)
  - Headache [None]
  - Diarrhoea [None]
  - Infusion related reaction [None]

NARRATIVE: CASE EVENT DATE: 20230428
